FAERS Safety Report 8249475-0 (Version None)
Quarter: 2012Q1

REPORT INFORMATION
  Report Type: 
  Country: None (occurrence: None)
  Receive Date: 20120328
  Receipt Date: 20120313
  Transmission Date: 20120608
  Serious: Yes (Hospitalization)
  Sender: FDA-Public Use
  Company Number: AXC-2011-000435

PATIENT
  Age: 88 Year
  Sex: Female

DRUGS (4)
  1. VIOKASE 16 (PANCRELIPASE) TABLET, 16000USP [Suspect]
     Indication: PANCREATIC DUCT OBSTRUCTION
     Dosage: 16000 USP,QD,ORAL
     Route: 048
  2. VIOKASE 16 (PANCRELIPASE) TABLET, 16000USP [Suspect]
     Indication: METABOLIC MYOPATHY
     Dosage: 16000 USP,QD,ORAL
     Route: 048
  3. VIOKASE 8 (PANCRELIPASE) TABLET, 800ISP [Suspect]
     Indication: PANCREATIC DUCT OBSTRUCTION
     Dosage: 8000USP, QD, ORAL;ORAL; 8000 USP, QID, ORAL; 8000 USP, BID, ORAL
     Route: 048
     Dates: start: 20010101
  4. VIOKASE 8 (PANCRELIPASE) TABLET, 800ISP [Suspect]
     Indication: PANCREATIC ENZYME ABNORMALITY
     Dosage: 8000USP, QD, ORAL;ORAL; 8000 USP, QID, ORAL; 8000 USP, BID, ORAL
     Route: 048
     Dates: start: 20010101

REACTIONS (5)
  - FATIGUE [None]
  - GASTROINTESTINAL PAIN [None]
  - DECREASED APPETITE [None]
  - ABDOMINAL PAIN UPPER [None]
  - DYSPEPSIA [None]
